FAERS Safety Report 16365340 (Version 1)
Quarter: 2019Q2

REPORT INFORMATION
  Report Type: Spontaneous
  Country: US (occurrence: US)
  Receive Date: 20190419
  Receipt Date: 20190419
  Transmission Date: 20190711
  Serious: Yes (Hospitalization)
  Sender: FDA-Public Use
  Company Number: None

PATIENT
  Age: 73 Year
  Sex: Male
  Weight: 70.8 kg

DRUGS (2)
  1. CASODEX [Suspect]
     Active Substance: BICALUTAMIDE
     Dates: end: 20180430
  2. LEUPROLIDE ACETATE. [Suspect]
     Active Substance: LEUPROLIDE ACETATE
     Dates: end: 20181221

REACTIONS (6)
  - Road traffic accident [None]
  - Sternal fracture [None]
  - Compression fracture [None]
  - Cerebral haemorrhage [None]
  - Lumbar vertebral fracture [None]
  - Pulmonary mass [None]

NARRATIVE: CASE EVENT DATE: 20190209
